FAERS Safety Report 5329027-2 (Version None)
Quarter: 2007Q2

REPORT INFORMATION
  Report Type: 
  Country: None (occurrence: None)
  Receive Date: 20070518
  Receipt Date: 20070509
  Transmission Date: 20071010
  Serious: Yes (Other)
  Sender: FDA-Public Use
  Company Number: US-PFIZER INC-2006027209

PATIENT
  Sex: Male

DRUGS (1)
  1. VIAGRA [Suspect]
     Dates: start: 20030701, end: 20040228

REACTIONS (2)
  - BLINDNESS UNILATERAL [None]
  - VISUAL ACUITY REDUCED [None]
